FAERS Safety Report 10391872 (Version 4)
Quarter: 2014Q3

REPORT INFORMATION
  Report Type: Spontaneous
  Country: ME (occurrence: ME)
  Receive Date: 20140819
  Receipt Date: 20140921
  Transmission Date: 20150326
  Serious: Yes (Life-Threatening, Hospitalization, Other)
  Sender: FDA-Public Use
  Company Number: PHHY2014ME100797

PATIENT
  Age: 63 Year
  Sex: Female

DRUGS (10)
  1. EPREX [Concomitant]
     Active Substance: ERYTHROPOIETIN
     Indication: ANAEMIA
     Dosage: 1000 UKN, 2-3 TIMES PER WEEK
     Route: 058
  2. VITAMIN D3 [Concomitant]
     Active Substance: CHOLECALCIFEROL
     Dosage: UNK UKN, UNK
  3. EXEMESTAN [Concomitant]
     Active Substance: EXEMESTANE
     Indication: BREAST CANCER METASTATIC
     Dosage: 25 MG, QD
     Route: 048
     Dates: start: 20140424
  4. AFINITOR [Concomitant]
     Active Substance: EVEROLIMUS
     Indication: BREAST CANCER METASTATIC
     Dosage: 10 MG, QD
     Route: 048
     Dates: start: 20140424, end: 20140617
  5. FERRUM LEK//DEXTRIFERRON [Concomitant]
     Indication: ANAEMIA
     Dosage: UNK UKN, BID
  6. FOLAN [Concomitant]
     Active Substance: FOLIC ACID
     Dosage: UNK UKN, UNK
  7. RECORMON//EPOETIN BETA [Concomitant]
     Dosage: UNK UKN, UNK
  8. ZOMETA [Suspect]
     Active Substance: ZOLEDRONIC ACID
     Indication: BREAST CANCER METASTATIC
     Dosage: 4 MG PER 5ML, UNK
     Route: 042
     Dates: start: 20140617, end: 20140617
  9. CONTROLOC//PANTOPRAZOLE [Concomitant]
     Dosage: UNK UKN, UNK
  10. CALCIUM [Concomitant]
     Active Substance: CALCIUM
     Dosage: UNK UKN, UNK

REACTIONS (9)
  - Urine output decreased [Unknown]
  - Enterocolitis [Unknown]
  - Renal impairment [Unknown]
  - Blood creatinine increased [Recovering/Resolving]
  - Clostridial infection [Unknown]
  - Blood urea increased [Recovering/Resolving]
  - Diarrhoea [Unknown]
  - Femur fracture [Unknown]
  - Tongue oedema [Recovered/Resolved]

NARRATIVE: CASE EVENT DATE: 20140617
